FAERS Safety Report 6262837-6 (Version None)
Quarter: 2009Q3

REPORT INFORMATION
  Report Type: 
  Country: None (occurrence: None)
  Receive Date: 20090708
  Receipt Date: 20090630
  Transmission Date: 20100115
  Serious: Yes (Other)
  Sender: FDA-Public Use
  Company Number: CHPA2009US14467

PATIENT
  Age: 67 Year
  Sex: Female
  Weight: 59 kg

DRUGS (4)
  1. EXCEDRIN (MIGRAINE) [Suspect]
     Indication: HEADACHE
     Dosage: 2 DF, QD PRN, ORAL
     Route: 048
     Dates: start: 20080101
  2. SYNTHROID [Concomitant]
  3. DARVOCET-N 100 [Concomitant]
  4. ISOCET (BUTALBITAL, CAFFEINE, PARACETAMOL) [Concomitant]

REACTIONS (4)
  - BLOOD PRESSURE INCREASED [None]
  - BLOOD TEST ABNORMAL [None]
  - NERVOUSNESS [None]
  - PROTEIN TOTAL INCREASED [None]
